FAERS Safety Report 7527426-1 (Version None)
Quarter: 2011Q2

REPORT INFORMATION
  Report Type: 
  Country: None (occurrence: None)
  Receive Date: 20110603
  Receipt Date: 20110524
  Transmission Date: 20111010
  Serious: Yes (Death, Hospitalization)
  Sender: FDA-Public Use
  Company Number: JPI-P-001390

PATIENT
  Age: 79 Year
  Sex: Male

DRUGS (5)
  1. XYREM [Suspect]
     Indication: DYSSOMNIA
     Dosage: SEE IMAGE: ORAL
     Route: 048
     Dates: start: 20050926
  2. XYREM [Suspect]
     Indication: DYSSOMNIA
     Dosage: SEE IMAGE: ORAL
     Route: 048
     Dates: start: 20050713
  3. XYREM [Suspect]
     Indication: DYSSOMNIA
     Dosage: SEE IMAGE: ORAL
     Route: 048
     Dates: start: 20061109, end: 20070428
  4. XYREM [Suspect]
     Indication: DYSSOMNIA
     Dosage: SEE IMAGE: ORAL
     Route: 048
     Dates: start: 20050601
  5. XYREM [Suspect]
     Indication: DYSSOMNIA
     Dosage: SEE IMAGE: ORAL
     Route: 048
     Dates: start: 20051228

REACTIONS (4)
  - FALL [None]
  - HIP FRACTURE [None]
  - UPPER GASTROINTESTINAL HAEMORRHAGE [None]
  - POST PROCEDURAL COMPLICATION [None]
